FAERS Safety Report 9900645 (Version 2)
Quarter: 2014Q1

REPORT INFORMATION
  Report Type: Spontaneous
  Country: FR (occurrence: FR)
  Receive Date: 20140217
  Receipt Date: 20140228
  Transmission Date: 20141002
  Serious: Yes (Hospitalization)
  Sender: FDA-Public Use
  Company Number: FR-009507513-1402FRA005535

PATIENT
  Age: 28 Year
  Sex: Female
  Weight: 71 kg

DRUGS (1)
  1. NEXPLANON [Suspect]
     Indication: CONTRACEPTION
     Dosage: UNK
     Route: 058
     Dates: start: 20111120

REACTIONS (2)
  - Adnexal torsion [Recovered/Resolved]
  - Fallopian tube cyst [Recovered/Resolved]
